FAERS Safety Report 23344211 (Version 4)
Quarter: 2024Q1

REPORT INFORMATION
  Report Type: Spontaneous
  Country: JP (occurrence: JP)
  Receive Date: 20231228
  Receipt Date: 20240328
  Transmission Date: 20240409
  Serious: Yes (Hospitalization, Disabling, Other)
  Sender: FDA-Public Use
  Company Number: JP-ONO-2023JP031847

PATIENT
  Age: 84 Year
  Sex: Female
  Weight: 37.4 kg

DRUGS (9)
  1. OPDIVO [Suspect]
     Active Substance: NIVOLUMAB
     Indication: Malignant neoplasm of unknown primary site
     Dosage: DOSE AND FREQUENCY: 240 MG, Q2W
     Route: 041
     Dates: start: 20231003, end: 20231128
  2. AMLODIPINE [Suspect]
     Active Substance: AMLODIPINE BESYLATE
     Indication: Product used for unknown indication
     Dosage: DOSE AND FREQUENCY: 5 MG, EVERYDAY
     Route: 048
     Dates: start: 20240104, end: 20240115
  3. AMPICILLIN SODIUM\SULBACTAM SODIUM [Suspect]
     Active Substance: AMPICILLIN SODIUM\SULBACTAM SODIUM
     Indication: Cellulitis
     Dosage: DOSE AND FREQUENCY: 1.5 G, Q8H
     Dates: start: 20231205, end: 20231214
  4. CEFAZOLIN SODIUM [Suspect]
     Active Substance: CEFAZOLIN SODIUM
     Indication: Pyrexia
     Dosage: DOSE AND FREQUENCY: 1 G, Q12H
     Dates: start: 20231214, end: 20231217
  5. SOLU-CORTEF [Suspect]
     Active Substance: HYDROCORTISONE SODIUM SUCCINATE
     Indication: Secondary adrenocortical insufficiency
     Dosage: DOSE AND FREQUENCY: 100 MG, Q8H
     Dates: start: 20231229, end: 20231231
  6. SOLU-CORTEF [Suspect]
     Active Substance: HYDROCORTISONE SODIUM SUCCINATE
     Dosage: DOSE AND FREQUENCY: 50 MG, Q12H
     Dates: start: 20240115
  7. OLANZAPINE [Concomitant]
     Active Substance: OLANZAPINE
     Indication: Product used for unknown indication
     Dosage: DOSE AND FREQUENCY: 5 MG, EVERYDAY
     Route: 048
     Dates: start: 20240111
  8. BENIDIPINE HYDROCHLORIDE [Concomitant]
     Active Substance: BENIDIPINE HYDROCHLORIDE
     Indication: Product used for unknown indication
     Dosage: DOSE AND FREQUENCY: 4 MG, EVERYDAY
     Route: 048
     Dates: end: 20231227
  9. SPIRONOLACTONE [Concomitant]
     Active Substance: SPIRONOLACTONE
     Indication: Product used for unknown indication
     Dosage: DOSE AND FREQUENCY: 25 MG, EVERYDAY
     Route: 048
     Dates: start: 20231128, end: 20231227

REACTIONS (14)
  - Asthenia [Not Recovered/Not Resolved]
  - Blood creatine phosphokinase increased [Unknown]
  - Secondary adrenocortical insufficiency [Not Recovered/Not Resolved]
  - Cellulitis [Recovering/Resolving]
  - Pneumonia [Recovering/Resolving]
  - Pneumonia aspiration [Recovering/Resolving]
  - Immune-mediated hypophysitis [Unknown]
  - Agranulocytosis [Recovered/Resolved]
  - Oedema peripheral [Unknown]
  - Pyrexia [Unknown]
  - Decreased appetite [Unknown]
  - Drug hypersensitivity [Unknown]
  - Erythema [Unknown]
  - Substance-induced psychotic disorder [Unknown]

NARRATIVE: CASE EVENT DATE: 20231128
